FAERS Safety Report 7439174-7 (Version None)
Quarter: 2011Q2

REPORT INFORMATION
  Report Type: 
  Country: None (occurrence: None)
  Receive Date: 20110427
  Receipt Date: 20110425
  Transmission Date: 20111010
  Serious: Yes (Death)
  Sender: FDA-Public Use
  Company Number: US-AMGEN-USASP2011019400

PATIENT
  Age: 51 Year
  Sex: Male

DRUGS (8)
  1. RITUXIMAB [Concomitant]
     Indication: IDIOPATHIC THROMBOCYTOPENIC PURPURA
     Dosage: 800 MG, ONE TIME DOSE
     Route: 042
     Dates: start: 20101010, end: 20101010
  2. CYCLOPHOSPHAMIDE [Concomitant]
  3. NPLATE [Suspect]
     Indication: IDIOPATHIC THROMBOCYTOPENIC PURPURA
     Dosage: 270 A?G, ONE TIME DOSE
     Route: 058
     Dates: start: 20101016, end: 20101016
  4. SOLU-MEDROL [Concomitant]
     Dosage: 75 MG, ONE TIME DOSE
     Route: 042
     Dates: start: 20101004, end: 20101004
  5. DECADRON [Concomitant]
     Dosage: 40 MG, QD
     Route: 048
     Dates: start: 20101012
  6. PREDNISONE [Concomitant]
     Dosage: 40 MG, BID
     Route: 048
     Dates: start: 20101005
  7. CORTICOSTEROIDS [Concomitant]
  8. IVIGLOB-EX [Concomitant]
     Indication: IDIOPATHIC THROMBOCYTOPENIC PURPURA
     Dosage: 36 G, QD
     Route: 042
     Dates: start: 20101005, end: 20101009

REACTIONS (1)
  - HAEMORRHAGE INTRACRANIAL [None]
